FAERS Safety Report 7639580-1 (Version None)
Quarter: 2011Q3

REPORT INFORMATION
  Report Type: 
  Country: None (occurrence: None)
  Receive Date: 20110727
  Receipt Date: 20110719
  Transmission Date: 20111222
  Serious: Yes (Hospitalization)
  Sender: FDA-Public Use
  Company Number: US-ABBOTT-11P-163-0840837-00

PATIENT
  Age: 58 Year
  Sex: Female

DRUGS (17)
  1. LORTAB [Concomitant]
     Indication: PAIN
     Dosage: 5/500
  2. GLIPIZIDE [Concomitant]
     Indication: DIABETES MELLITUS
  3. FLEXERIL [Concomitant]
     Indication: MUSCLE SPASMS
  4. ESTRADIOL [Concomitant]
     Indication: HORMONE REPLACEMENT THERAPY
  5. HUMIRA [Suspect]
     Route: 058
     Dates: start: 20110719
  6. CELEXA [Concomitant]
     Indication: DEPRESSION
     Dosage: AT BEDTIME
  7. FOLIC ACID [Concomitant]
     Indication: VITAMIN SUPPLEMENTATION
  8. METFORMIN HCL [Concomitant]
     Indication: DIABETES MELLITUS
  9. VITAMIN D2 [Concomitant]
     Indication: VITAMIN SUPPLEMENTATION
  10. KLONOPIN [Concomitant]
     Indication: ANXIETY
  11. ADVAIR DISKUS 100/50 [Concomitant]
     Indication: ASTHMA
     Dosage: 500/50
  12. LIPITOR [Concomitant]
     Indication: HYPERLIPIDAEMIA
  13. AMBIEN [Concomitant]
     Indication: INSOMNIA
     Dosage: AT BEDTIME
  14. HUMIRA [Suspect]
     Indication: PSORIATIC ARTHROPATHY
     Route: 058
  15. ALBUTEROL SULFATE AUTOHALER [Concomitant]
     Indication: ASTHMA
  16. LASIX [Concomitant]
     Indication: OEDEMA
  17. FLEXERIL [Concomitant]
     Indication: BACK PAIN
     Dosage: AT BEDTIME

REACTIONS (5)
  - CARDIAC FAILURE CONGESTIVE [None]
  - HYPERHIDROSIS [None]
  - BLOOD CREATININE INCREASED [None]
  - OEDEMA PERIPHERAL [None]
  - DYSPNOEA [None]
